FAERS Safety Report 16171214 (Version 1)
Quarter: 2019Q2

REPORT INFORMATION
  Report Type: Spontaneous
  Country: DE (occurrence: DE)
  Receive Date: 20190408
  Receipt Date: 20190408
  Transmission Date: 20190711
  Serious: Yes (Other)
  Sender: FDA-Public Use
  Company Number: DE-BIOGEN-2019BI00720069

PATIENT
  Sex: Male
  Weight: 80 kg

DRUGS (3)
  1. TECFIDERA [Suspect]
     Active Substance: DIMETHYL FUMARATE
     Indication: MULTIPLE SCLEROSIS
     Route: 065
     Dates: start: 20180220
  2. TECFIDERA [Suspect]
     Active Substance: DIMETHYL FUMARATE
     Route: 065
  3. ATORVASTATIN [Concomitant]
     Active Substance: ATORVASTATIN
     Indication: HYPERCHOLESTEROLAEMIA
     Route: 065

REACTIONS (7)
  - Pancytopenia [Recovered/Resolved]
  - White blood cell count decreased [Recovered/Resolved]
  - Erectile dysfunction [Unknown]
  - Fatigue [Recovered/Resolved]
  - Cognitive disorder [Not Recovered/Not Resolved]
  - Prescribed underdose [Unknown]
  - Lymphocyte count decreased [Recovered/Resolved]
